FAERS Safety Report 12256684 (Version 1)
Quarter: 2016Q2

REPORT INFORMATION
  Report Type: Spontaneous
  Country: None (occurrence: None)
  Receive Date: 20160411
  Receipt Date: 20160411
  Transmission Date: 20160815
  Serious: Yes (Other)
  Sender: FDA-Public Use
  Company Number: None

PATIENT
  Age: 10 Year
  Sex: Female
  Weight: 54.43 kg

DRUGS (2)
  1. QUETIAPINE 100MG [Suspect]
     Active Substance: QUETIAPINE
     Route: 048
     Dates: start: 201312
  2. QUETIAPINE 50MG [Suspect]
     Active Substance: QUETIAPINE
     Indication: AUTISM
     Route: 048
     Dates: start: 201305

REACTIONS (3)
  - Drug ineffective [None]
  - Abnormal behaviour [None]
  - Aggression [None]

NARRATIVE: CASE EVENT DATE: 201305
